FAERS Safety Report 19897475 (Version 2)
Quarter: 2021Q4

REPORT INFORMATION
  Report Type: Spontaneous
  Country: JP (occurrence: JP)
  Receive Date: 20210930
  Receipt Date: 20211012
  Transmission Date: 20220303
  Serious: Yes (Other)
  Sender: FDA-Public Use
  Company Number: JP-AUROBINDO-AUR-APL-2021-040841

PATIENT
  Sex: Male

DRUGS (3)
  1. FOLOTYN [Suspect]
     Active Substance: PRALATREXATE
     Indication: Angioimmunoblastic T-cell lymphoma stage III
     Dosage: UNK
     Route: 042
  2. ISTODAX [Concomitant]
     Active Substance: ROMIDEPSIN
     Indication: Product used for unknown indication
     Dosage: UNK
     Route: 065
  3. FORODESINE HYDROCHLORIDE [Concomitant]
     Active Substance: FORODESINE HYDROCHLORIDE
     Indication: Product used for unknown indication
     Dosage: UNK
     Route: 065

REACTIONS (1)
  - Blood lactate dehydrogenase increased [Recovered/Resolved]
